FAERS Safety Report 6297244-3 (Version None)
Quarter: 2009Q3

REPORT INFORMATION
  Report Type: 
  Country: None (occurrence: None)
  Receive Date: 20090804
  Receipt Date: 20090804
  Transmission Date: 20100115
  Serious: No
  Sender: FDA-Public Use
  Company Number: None

PATIENT
  Sex: Female
  Weight: 47.3102 kg

DRUGS (1)
  1. PILOCARPINE [Suspect]
     Dosage: 4X PER DAY    AT BEDTIME
     Dates: start: 20090710

REACTIONS (7)
  - DRUG INEFFECTIVE [None]
  - FATIGUE [None]
  - FEELING ABNORMAL [None]
  - INSOMNIA [None]
  - ODYNOPHAGIA [None]
  - PHARYNGEAL DISORDER [None]
  - RESTLESS LEGS SYNDROME [None]
